FAERS Safety Report 10611967 (Version 2)
Quarter: 2014Q4

REPORT INFORMATION
  Report Type: Spontaneous
  Country: US (occurrence: US)
  Receive Date: 20141126
  Receipt Date: 20141218
  Transmission Date: 20150529
  Serious: Yes (Death, Life-Threatening, Hospitalization, Other)
  Sender: FDA-Public Use
  Company Number: US-009507513-1411USA012606

PATIENT
  Sex: Male
  Weight: 72.56 kg

DRUGS (2)
  1. JANUVIA [Suspect]
     Active Substance: SITAGLIPTIN PHOSPHATE
     Dosage: 50 MG, QD
     Route: 048
     Dates: start: 20090209
  2. JANUVIA [Suspect]
     Active Substance: SITAGLIPTIN PHOSPHATE
     Indication: TYPE 2 DIABETES MELLITUS
     Dosage: 100 MG, QD
     Route: 048
     Dates: start: 20070605, end: 20130309

REACTIONS (30)
  - Knee arthroplasty [Unknown]
  - Essential hypertension [Unknown]
  - Stent placement [Unknown]
  - Biliary sphincterotomy [Unknown]
  - Incision site complication [Unknown]
  - Metastases to liver [Unknown]
  - Pancreatic carcinoma metastatic [Fatal]
  - Cholecystectomy [Unknown]
  - Carotid endarterectomy [Unknown]
  - Pancreatitis [Recovered/Resolved]
  - Catheter placement [Unknown]
  - Gastrointestinal haemorrhage [Unknown]
  - Osteoarthritis [Unknown]
  - Benign prostatic hyperplasia [Unknown]
  - Transient ischaemic attack [Unknown]
  - Urinary retention [Unknown]
  - Drug ineffective [Unknown]
  - Cholelithiasis [Unknown]
  - Cerebrovascular accident [Unknown]
  - Coronary artery bypass [Unknown]
  - Pancreatitis acute [Unknown]
  - Incision site haematoma [Unknown]
  - Hyperlipidaemia [Unknown]
  - Atrial fibrillation [Unknown]
  - Carotid artery stenosis [Unknown]
  - Chronic kidney disease [Not Recovered/Not Resolved]
  - Peripheral vascular disorder [Unknown]
  - Constipation [Unknown]
  - Biliary tract disorder [Unknown]
  - Anuria [Unknown]

NARRATIVE: CASE EVENT DATE: 20081020
